FAERS Safety Report 15276517 (Version 1)
Quarter: 2018Q3

REPORT INFORMATION
  Report Type: Spontaneous
  Country: US (occurrence: US)
  Receive Date: 20180814
  Receipt Date: 20180814
  Transmission Date: 20181010
  Serious: Yes (Hospitalization)
  Sender: FDA-Public Use
  Company Number: US-APOTEX-2018AP019174

PATIENT
  Age: 48 Year
  Sex: Male

DRUGS (5)
  1. ZONISAMIDE. [Suspect]
     Active Substance: ZONISAMIDE
     Indication: POST-ANOXIC MYOCLONUS
     Dosage: 150 MG, QID
     Route: 065
  2. DIVALPROEX [Suspect]
     Active Substance: DIVALPROEX SODIUM
     Indication: POST-ANOXIC MYOCLONUS
     Dosage: UNK
     Route: 065
  3. BACLOFEN. [Concomitant]
     Active Substance: BACLOFEN
     Indication: POST-ANOXIC MYOCLONUS
     Dosage: 75 MG, UNK
     Route: 065
  4. CLONAZEPAM. [Suspect]
     Active Substance: CLONAZEPAM
     Indication: POST-ANOXIC MYOCLONUS
     Dosage: UNK
     Route: 065
  5. LEVETIRACETAM. [Suspect]
     Active Substance: LEVETIRACETAM
     Indication: POST-ANOXIC MYOCLONUS
     Dosage: UNK
     Route: 065

REACTIONS (3)
  - Drug effect incomplete [Unknown]
  - Blunted affect [Unknown]
  - Confusional state [Unknown]
